FAERS Safety Report 4432362-3 (Version None)
Quarter: 2004Q3

REPORT INFORMATION
  Report Type: 
  Country: None (occurrence: None)
  Receive Date: 20040820
  Receipt Date: 20040816
  Transmission Date: 20050211
  Serious: Yes (Other)
  Sender: FDA-Public Use
  Company Number: 2004-05-1278

PATIENT
  Age: 71 Year
  Sex: Female

DRUGS (3)
  1. INTRON A [Suspect]
     Indication: HEPATITIS C
     Dosage: 6 MIU INTRAMUSCULAR
     Route: 030
     Dates: start: 20020518, end: 20021112
  2. REBETOL [Suspect]
     Indication: HEPATITIS C
     Dosage: 600 MG ORAL
     Route: 048
     Dates: start: 20020518, end: 20021112
  3. INTRON A [Suspect]
     Indication: HEPATITIS C
     Dosage: 3 MIU
     Dates: start: 20021112, end: 20030410

REACTIONS (2)
  - BREAST CANCER RECURRENT [None]
  - METASTASES TO BONE [None]
